FAERS Safety Report 17049642 (Version 1)
Quarter: 2019Q4

REPORT INFORMATION
  Report Type: Report from Study
  Country: DE (occurrence: DE)
  Receive Date: 20191119
  Receipt Date: 20191119
  Transmission Date: 20200122
  Serious: Yes (Other)
  Sender: FDA-Public Use
  Company Number: DE-MYLANLABS-2019M1109998

PATIENT
  Sex: Female

DRUGS (5)
  1. LEVETIRACETAM. [Suspect]
     Active Substance: LEVETIRACETAM
     Indication: EPILEPSY
     Dosage: 1000 MILLIGRAM, QD
     Dates: start: 20050525
  2. VALPROIC ACID. [Suspect]
     Active Substance: VALPROIC ACID
     Dosage: 1500 MG,MAX SINGLE DOSE:1000 MG
     Dates: start: 2005
  3. LAMOTRIGINE. [Concomitant]
     Active Substance: LAMOTRIGINE
     Indication: EPILEPSY
     Dosage: MAX SINGLE DOSE:200 MG QD:350 MG
     Dates: start: 20031231, end: 20050622
  4. CLOBAZAM. [Suspect]
     Active Substance: CLOBAZAM
     Indication: EPILEPSY
     Dosage: 10 MG, ONCE DAILY (QD)
     Dates: start: 20050525
  5. VALPROIC ACID. [Suspect]
     Active Substance: VALPROIC ACID
     Indication: EPILEPSY
     Dosage: 1000 MG,QD
     Dates: start: 20011231

REACTIONS (4)
  - Premature delivery [Recovered/Resolved]
  - Pregnancy with contraceptive device [Recovered/Resolved]
  - Maternal exposure during pregnancy [Recovered/Resolved]
  - Pregnancy on contraceptive [Recovered/Resolved]

NARRATIVE: CASE EVENT DATE: 20050528
